FAERS Safety Report 6119740-1 (Version None)
Quarter: 2009Q1

REPORT INFORMATION
  Report Type: 
  Country: None (occurrence: None)
  Receive Date: 20090316
  Receipt Date: 20090311
  Transmission Date: 20090719
  Serious: Yes (Hospitalization)
  Sender: FDA-Public Use
  Company Number: US-MERCK-0903USA01936

PATIENT
  Age: 67 Year
  Sex: Male

DRUGS (3)
  1. NIACIN [Suspect]
     Route: 065
     Dates: start: 20081201
  2. MEVACOR [Suspect]
     Route: 048
     Dates: start: 20081201
  3. ZOCOR [Suspect]
     Route: 048
     Dates: start: 20090201

REACTIONS (4)
  - CORONARY ARTERY OCCLUSION [None]
  - MUSCULOSKELETAL CHEST PAIN [None]
  - MYOCARDIAL INFARCTION [None]
  - THROMBOSIS [None]
